FAERS Safety Report 25549360 (Version 1)
Quarter: 2025Q3

REPORT INFORMATION
  Report Type: Spontaneous
  Country: EU (occurrence: EU)
  Receive Date: 20250714
  Receipt Date: 20250714
  Transmission Date: 20251021
  Serious: Yes (Life-Threatening, Hospitalization, Other)
  Sender: HIKMA
  Company Number: EU-MLMSERVICE-20250625-PI555146-00101-1

PATIENT
  Age: 58 Year
  Sex: Female

DRUGS (3)
  1. CISPLATIN [Suspect]
     Active Substance: CISPLATIN
     Indication: Osteosarcoma
     Dosage: 100 MG/M2 ON DAY 1
     Route: 065
  2. DOXORUBICIN [Suspect]
     Active Substance: DOXORUBICIN
     Indication: Osteosarcoma
     Dosage: 20 MG/M2 ON DAY 1
     Route: 065
  3. IFOSFAMIDE [Suspect]
     Active Substance: IFOSFAMIDE
     Indication: Osteosarcoma
     Dosage: 3,000 MG/M2 ON DAYS 1 TO 3
     Route: 065

REACTIONS (3)
  - Febrile bone marrow aplasia [Recovering/Resolving]
  - Hepatotoxicity [Recovering/Resolving]
  - Acute kidney injury [Recovering/Resolving]
